FAERS Safety Report 11164797 (Version 2)
Quarter: 2015Q2

REPORT INFORMATION
  Report Type: Spontaneous
  Country: US (occurrence: US)
  Receive Date: 20150604
  Receipt Date: 20150617
  Transmission Date: 20150821
  Serious: Yes (Other)
  Sender: FDA-Public Use
  Company Number: US-APOTEX-2015AP009760

PATIENT
  Age: 48 Year
  Sex: Male

DRUGS (1)
  1. ZOLPIDEM TARTRATE. [Suspect]
     Active Substance: ZOLPIDEM TARTRATE
     Indication: PRODUCT USED FOR UNKNOWN INDICATION
     Dosage: 50 TO 100 MG PER DAY FOR PAST 5 YEARS
     Route: 065

REACTIONS (5)
  - Drug abuse [Unknown]
  - Drug tolerance [Unknown]
  - Seizure [Recovered/Resolved]
  - Drug diversion [Unknown]
  - Drug withdrawal syndrome [Unknown]
